FAERS Safety Report 4404304-8 (Version None)
Quarter: 2004Q3

REPORT INFORMATION
  Report Type: 
  Country: None (occurrence: None)
  Receive Date: 20040720
  Receipt Date: 20040708
  Transmission Date: 20050211
  Serious: No
  Sender: FDA-Public Use
  Company Number: 2004UW14346

PATIENT
  Age: 64 Year
  Sex: Male

DRUGS (6)
  1. IRESSA [Suspect]
     Indication: PROSTATE CANCER
     Dates: end: 20040628
  2. NORTRIPTYLINE HCL [Concomitant]
  3. CENTRUM [Concomitant]
  4. IMODIUM [Concomitant]
  5. DIFFERIN [Concomitant]
  6. STERISOL [Concomitant]

REACTIONS (5)
  - ABDOMINAL PAIN UPPER [None]
  - COUGH [None]
  - DIARRHOEA [None]
  - DYSPNOEA [None]
  - PYREXIA [None]
